FAERS Safety Report 13946059 (Version 2)
Quarter: 2019Q4

REPORT INFORMATION
  Report Type: Spontaneous
  Country: US (occurrence: US)
  Receive Date: 20170907
  Receipt Date: 20191018
  Transmission Date: 20200122
  Serious: Yes (Other)
  Sender: FDA-Public Use
  Company Number: US-PFIZER INC-2017386239

PATIENT
  Age: 67 Year
  Sex: Male

DRUGS (13)
  1. VIAGRA [Suspect]
     Active Substance: SILDENAFIL CITRATE
     Dosage: 100 MG, THREE TIMES A MONTH
     Route: 048
     Dates: start: 20150921, end: 20160617
  2. DOXAZOSIN MESYLATE. [Concomitant]
     Active Substance: DOXAZOSIN MESYLATE
     Indication: PROSTATOMEGALY
     Dosage: 1 DF, 2X/DAY
     Dates: start: 20121001
  3. VIAGRA [Suspect]
     Active Substance: SILDENAFIL CITRATE
     Indication: ERECTILE DYSFUNCTION
     Dosage: 50 MG, THREE TIMES A MONTH
     Route: 048
     Dates: end: 20150701
  4. VIAGRA [Suspect]
     Active Substance: SILDENAFIL CITRATE
     Dosage: UNK
     Route: 048
     Dates: start: 201509, end: 201612
  5. CIALIS [Suspect]
     Active Substance: TADALAFIL
     Dosage: 20 MG, THREE TIMES A MONTH
     Route: 048
     Dates: start: 20161219, end: 20161219
  6. FOSINOPRIL-HYDROCHLOROTHIAZIDE [Concomitant]
     Dosage: UNK
  7. FINASTERIDE. [Concomitant]
     Active Substance: FINASTERIDE
     Dosage: 5 MG, UNK
  8. CIALIS [Suspect]
     Active Substance: TADALAFIL
     Indication: ERECTILE DYSFUNCTION
     Dosage: 20 MG, THREE TIMES A MONTH
     Route: 048
     Dates: start: 20071119, end: 20090908
  9. CIALIS [Suspect]
     Active Substance: TADALAFIL
     Dosage: 20 MG, THREE TIMES A MONTH
     Route: 048
     Dates: start: 20090929, end: 20120820
  10. CIALIS [Suspect]
     Active Substance: TADALAFIL
     Dosage: 20 MG, THREE TIMES A MONTH
     Route: 048
     Dates: start: 20121001, end: 20150316
  11. FINASTERIDE. [Concomitant]
     Active Substance: FINASTERIDE
     Indication: BENIGN PROSTATIC HYPERPLASIA
     Dosage: 5 MG, UNK
     Dates: start: 20090426, end: 20181231
  12. CIALIS [Suspect]
     Active Substance: TADALAFIL
     Dosage: UNK
     Route: 048
     Dates: start: 201210
  13. FOSINOPRIL-HYDROCHLOROTHIAZIDE [Concomitant]
     Indication: HYPERTENSION
     Dosage: UNK
     Dates: start: 20090426, end: 20181231

REACTIONS (1)
  - Malignant melanoma [Unknown]

NARRATIVE: CASE EVENT DATE: 20130911
